FAERS Safety Report 14745051 (Version 1)
Quarter: 2018Q2

REPORT INFORMATION
  Report Type: Spontaneous
  Country: US (occurrence: US)
  Receive Date: 20180405
  Receipt Date: 20180405
  Transmission Date: 20180711
  Serious: No
  Sender: FDA-Public Use
  Company Number: None

PATIENT
  Age: 46 Year
  Sex: Male

DRUGS (3)
  1. ATORVASTATIN 10MG [Concomitant]
     Active Substance: ATORVASTATIN
  2. LOSARTAN. [Suspect]
     Active Substance: LOSARTAN
     Route: 048
  3. ACYCLOVIR 800MG [Concomitant]
     Active Substance: ACYCLOVIR

REACTIONS (6)
  - Dyspnoea [None]
  - Fatigue [None]
  - Swelling [None]
  - Epistaxis [None]
  - Headache [None]
  - Hypertension [None]

NARRATIVE: CASE EVENT DATE: 20171207
